FAERS Safety Report 7481094-6 (Version None)
Quarter: 2011Q2

REPORT INFORMATION
  Report Type: 
  Country: None (occurrence: None)
  Receive Date: 20110516
  Receipt Date: 20110509
  Transmission Date: 20111010
  Serious: Yes (Hospitalization)
  Sender: FDA-Public Use
  Company Number: FR-SANOFI-AVENTIS-2011SA029518

PATIENT
  Age: 47 Year
  Sex: Male

DRUGS (4)
  1. MORPHINE SULFATE [Suspect]
     Indication: INTENTIONAL OVERDOSE
     Dosage: DOSE:20 UNIT(S)
     Route: 048
     Dates: start: 20110108, end: 20110108
  2. ZOLPIDEM [Suspect]
     Indication: INTENTIONAL OVERDOSE
     Dosage: DOSE:14 UNIT(S)
     Route: 048
     Dates: start: 20110108, end: 20110108
  3. EFFEXOR [Suspect]
     Indication: INTENTIONAL OVERDOSE
     Dosage: DOSE:10 UNIT(S)
     Route: 048
     Dates: start: 20110108, end: 20110108
  4. ZYPREXA [Suspect]
     Indication: INTENTIONAL OVERDOSE
     Dosage: DOSE:14 UNIT(S)
     Route: 048
     Dates: start: 20110108, end: 20110108

REACTIONS (3)
  - POISONING DELIBERATE [None]
  - PNEUMONIA ASPIRATION [None]
  - COMA [None]
